FAERS Safety Report 9515337 (Version 2)
Quarter: 2014Q1

REPORT INFORMATION
  Report Type: Spontaneous
  Country: US (occurrence: None)
  Receive Date: 20130305
  Receipt Date: 20140306
  Transmission Date: 20141002
  Serious: Yes (Other)
  Sender: FDA-Public Use
  Company Number: 163-21880-12121508

PATIENT
  Age: 64 Year
  Sex: Female
  Weight: 74.39 kg

DRUGS (14)
  1. REVLIMID [Suspect]
     Indication: ACUTE MYELOID LEUKAEMIA
     Dosage: 10 MG, 28 IN 28 D, PO
     Route: 048
     Dates: start: 20120717
  2. BRIMONIDINE TARTRATE (BRIMONIDINE TARTRATE) (UNKNOWN) [Concomitant]
  3. CIPRO (CIPROFLOXACIN) (UNKNOWN) [Concomitant]
  4. DIFLUCAN (FLUCONAZOLE) (UNKNOWN) [Concomitant]
  5. LATANOPROST (LATANOPROST) (UNKNOWN) [Concomitant]
  6. LORTAB (VICODIN) (UNKNOWN) [Concomitant]
  7. PROCHLORPERAZINE MALEATE (PROCHLORPERAZINE MALEATE) (UNKNOWN) [Concomitant]
  8. SERTRALINE HCL (SERTRALINE HYDROCHLORIDE) (UNKNOWN) [Concomitant]
  9. TIMOLOL MALEATE (TIMOLOL MALEATE) (UNKNOWN) [Concomitant]
  10. DACOGEN (DECITABINE) [Concomitant]
  11. AMBIEN (ZOLPIDEM TARTRATE) [Concomitant]
  12. HYDROCODONE-ACETAMINOPHEN (VICODIN) [Concomitant]
  13. MOBIC (MELOXICAM) [Concomitant]
  14. NEULASTA (PEGFILGRASTIM) [Concomitant]

REACTIONS (3)
  - Blood count abnormal [None]
  - Pancytopenia [None]
  - Cellulitis [None]
